FAERS Safety Report 25731337 (Version 1)
Quarter: 2025Q3

REPORT INFORMATION
  Report Type: Spontaneous
  Country: US (occurrence: None)
  Receive Date: 20250826
  Receipt Date: 20250826
  Transmission Date: 20251020
  Serious: Yes (Other)
  Sender: FDA-CTU
  Company Number: None

PATIENT
  Age: 53 Year
  Sex: Female
  Weight: 80.1 kg

DRUGS (7)
  1. RISPERIDONE [Suspect]
     Active Substance: RISPERIDONE
     Indication: Extrapyramidal disorder
     Dosage: OTHER FREQUENCY : ONCE MONTHLY;?
     Route: 058
     Dates: start: 20250407
  2. BENZTROPINE MESYLATE [Suspect]
     Active Substance: BENZTROPINE MESYLATE
     Dates: start: 20250408, end: 20250424
  3. CETIRIZINE [Suspect]
     Active Substance: CETIRIZINE HYDROCHLORIDE
     Dates: start: 20250424
  4. Magnesium hydroxide 8% 30 mL q24h prn [Concomitant]
  5. Polyethylene glycol 17 grams Daily [Concomitant]
     Dates: start: 20250423
  6. Risperidone 90 mg ER sub-Q injection q month [Concomitant]
     Dates: start: 20250407
  7. senna 8.6 mg Daily [Concomitant]

REACTIONS (3)
  - Ileus [None]
  - Anticholinergic effect [None]
  - Rectal tenesmus [None]

NARRATIVE: CASE EVENT DATE: 20250424
